FAERS Safety Report 10063272 (Version 1)
Quarter: 2014Q1

REPORT INFORMATION
  Report Type: Spontaneous
  Country: US (occurrence: None)
  Receive Date: 20140327
  Receipt Date: 20140327
  Transmission Date: 20141002
  Serious: Yes (Other)
  Sender: FDA-Public Use
  Company Number: 381146

PATIENT
  Age: 69 Year
  Sex: Female
  Weight: 40 kg

DRUGS (3)
  1. NOVOSEVEN RT [Suspect]
     Indication: FACTOR VIII INHIBITION
     Route: 042
     Dates: start: 20130603, end: 20130607
  2. NOVOSEVEN RT [Suspect]
     Indication: HAEMORRHAGE
     Route: 042
     Dates: start: 20130603, end: 20130607
  3. NOVOSEVEN RT [Suspect]
     Route: 042
     Dates: start: 20130603, end: 20130607

REACTIONS (1)
  - Drug ineffective [None]
